FAERS Safety Report 19395615 (Version 1)
Quarter: 2021Q2

REPORT INFORMATION
  Report Type: Spontaneous
  Country: US (occurrence: US)
  Receive Date: 20210609
  Receipt Date: 20210609
  Transmission Date: 20210717
  Serious: Yes (Life-Threatening, Other)
  Sender: FDA-Public Use
  Company Number: US-FRESENIUS KABI-FK202105811

PATIENT
  Age: 79 Year
  Sex: Male

DRUGS (10)
  1. INSULIN GLARGINE [Concomitant]
     Active Substance: INSULIN GLARGINE
     Indication: DIABETES MELLITUS
     Dosage: 50 UNITS
     Route: 058
  2. CEFTRIAXONE. [Concomitant]
     Active Substance: CEFTRIAXONE
     Indication: PNEUMONIA
     Route: 042
  3. REMDESIVIR. [Concomitant]
     Active Substance: REMDESIVIR
     Indication: COVID-19 PNEUMONIA
     Route: 042
  4. DEXAMETHASONE INJECTION (MANUFACTURER UNKNOWN) [Suspect]
     Active Substance: DEXAMETHASONE
     Indication: COVID-19 PNEUMONIA
  5. AZITHROMYCIN ANHYDROUS. [Concomitant]
     Active Substance: AZITHROMYCIN ANHYDROUS
     Indication: PNEUMONIA
     Route: 042
  6. INSULIN LISPRO [Concomitant]
     Active Substance: INSULIN LISPRO
     Indication: COVID-19 PNEUMONIA
  7. DEXAMETHASONE INJECTION (MANUFACTURER UNKNOWN) [Suspect]
     Active Substance: DEXAMETHASONE
     Indication: SEVERE ACUTE RESPIRATORY SYNDROME
     Route: 042
  8. INSULIN LISPRO [Concomitant]
     Active Substance: INSULIN LISPRO
     Indication: DIABETES MELLITUS
     Dosage: SLIDING SCALE
     Route: 065
  9. INSULIN GLARGINE [Concomitant]
     Active Substance: INSULIN GLARGINE
     Indication: COVID-19 PNEUMONIA
  10. REMDESIVIR. [Concomitant]
     Active Substance: REMDESIVIR
     Indication: SEVERE ACUTE RESPIRATORY SYNDROME
     Route: 042

REACTIONS (7)
  - Pulmonary mucormycosis [Unknown]
  - Staphylococcal infection [Unknown]
  - Respiratory failure [Unknown]
  - Bronchopulmonary aspergillosis [Unknown]
  - Pneumonia [Unknown]
  - Encephalopathy [Unknown]
  - Klebsiella infection [Unknown]
